FAERS Safety Report 4264553-9 (Version None)
Quarter: 2004Q1

REPORT INFORMATION
  Report Type: 
  Country: None (occurrence: None)
  Receive Date: 20040106
  Receipt Date: 20030829
  Transmission Date: 20041129
  Serious: Yes (Death, Life-Threatening, Hospitalization, Other)
  Sender: FDA-Public Use
  Company Number: WAES 0309USA00275

PATIENT
  Age: 0 Day
  Sex: Female
  Weight: 1 kg

DRUGS (4)
  1. DIAZEPAM [Concomitant]
     Dates: start: 19920127, end: 19920129
  2. INDOCIN [Suspect]
     Indication: PREMATURE LABOUR
     Dates: start: 19920127, end: 19920129
  3. MAGNESIUM SULFATE [Concomitant]
     Dates: start: 19920127, end: 19920129
  4. RITODRINE [Concomitant]
     Dates: start: 19920127, end: 19920129

REACTIONS (8)
  - APGAR SCORE LOW [None]
  - MATERNAL DRUGS AFFECTING FOETUS [None]
  - NEONATAL DISORDER [None]
  - NEONATAL RESPIRATORY DISTRESS SYNDROME [None]
  - PERITONEAL DIALYSIS [None]
  - PERITONEAL HAEMORRHAGE [None]
  - PREMATURE BABY [None]
  - RENAL FAILURE ACUTE [None]
